FAERS Safety Report 6383981-9 (Version None)
Quarter: 2009Q3

REPORT INFORMATION
  Report Type: 
  Country: None (occurrence: None)
  Receive Date: 20090928
  Receipt Date: 20090907
  Transmission Date: 20100115
  Serious: Yes (Hospitalization, Other)
  Sender: FDA-Public Use
  Company Number: JPI-P-008067

PATIENT
  Age: 23 Year
  Sex: Female

DRUGS (4)
  1. FLUVOXAMINE MALEATE [Suspect]
     Indication: DECREASED APPETITE
     Dosage: 300 MG (300 MG, 1 IN 1 D), ORAL, 900 MG (300 MG, 3 IN  D), ORAL ONCE
     Route: 048
  2. PAROXETINE [Suspect]
     Indication: DECREASED APPETITE
     Dosage: 90 MG (30 MG, 3 IN 1 D), ORAL
     Route: 048
  3. CLOMIPRAMINE [Suspect]
     Indication: DECREASED APPETITE
     Dosage: 180 MG (60 MG, 3 IN 1 D), ORAL
     Route: 048
  4. LORAZEPAM [Suspect]
     Indication: DECREASED APPETITE
     Dosage: 0.5 MG (0.5 MG, 1 IN 1 D), ORAL
     Route: 048

REACTIONS (16)
  - AGITATION [None]
  - BLOOD PH INCREASED [None]
  - BLOOD PRESSURE ABNORMAL [None]
  - CAROTID PULSE ABNORMAL [None]
  - CONVULSION [None]
  - ELECTROCARDIOGRAM QT PROLONGED [None]
  - HEART RATE INCREASED [None]
  - HYPOTENSION [None]
  - LOSS OF CONSCIOUSNESS [None]
  - MULTIPLE DRUG OVERDOSE INTENTIONAL [None]
  - MYDRIASIS [None]
  - PCO2 DECREASED [None]
  - PO2 INCREASED [None]
  - RHABDOMYOLYSIS [None]
  - SINUS TACHYCARDIA [None]
  - VENTRICULAR EXTRASYSTOLES [None]
